FAERS Safety Report 5602516-9 (Version None)
Quarter: 2008Q1

REPORT INFORMATION
  Report Type: 
  Country: None (occurrence: None)
  Receive Date: 20080125
  Receipt Date: 20080121
  Transmission Date: 20080703
  Serious: Yes (Other)
  Sender: FDA-Public Use
  Company Number: B0496782A

PATIENT
  Age: 62 Year
  Sex: Male

DRUGS (3)
  1. AVIDART [Suspect]
     Route: 048
     Dates: start: 20060213
  2. LIPEMOL [Concomitant]
     Route: 065
  3. ALLOPURINOL [Concomitant]
     Route: 065

REACTIONS (3)
  - BILIRUBIN CONJUGATED INCREASED [None]
  - BLOOD BILIRUBIN INCREASED [None]
  - BLOOD BILIRUBIN UNCONJUGATED INCREASED [None]
